FAERS Safety Report 9015978 (Version 1)
Quarter: 2013Q1

REPORT INFORMATION
  Report Type: Spontaneous
  Country: US (occurrence: US)
  Receive Date: 20130116
  Receipt Date: 20130116
  Transmission Date: 20140127
  Serious: Yes (Other)
  Sender: FDA-Public Use
  Company Number: US-009507513-0909USA03351

PATIENT
  Age: 3 Year
  Sex: Female
  Weight: 20.41 kg

DRUGS (2)
  1. SINGULAIR [Suspect]
     Indication: MULTIPLE ALLERGIES
     Dosage: 1 DF, HS
     Route: 048
     Dates: start: 20060813, end: 20090221
  2. SINGULAIR [Suspect]
     Indication: ASTHMA
     Dosage: 5 MG, HS
     Route: 048

REACTIONS (3)
  - Anger [Unknown]
  - Depression [Unknown]
  - Overdose [Unknown]
